FAERS Safety Report 8260657-4 (Version None)
Quarter: 2012Q2

REPORT INFORMATION
  Report Type: 
  Country: None (occurrence: None)
  Receive Date: 20120405
  Receipt Date: 20120322
  Transmission Date: 20120825
  Serious: Yes (Disabling, Other)
  Sender: FDA-Public Use
  Company Number: DE-AMGEN-DEUSP2012011975

PATIENT
  Age: 55 Year
  Sex: Female
  Weight: 66 kg

DRUGS (2)
  1. ENBREL [Suspect]
     Indication: RHEUMATOID ARTHRITIS
     Dosage: UNK
     Dates: start: 20090525
  2. METHOTREXATE [Concomitant]
     Indication: RHEUMATOID ARTHRITIS
     Dosage: UNK
     Dates: start: 20090528

REACTIONS (6)
  - PARESIS [None]
  - PARAESTHESIA [None]
  - CENTRAL NERVOUS SYSTEM INFLAMMATION [None]
  - INTERVERTEBRAL DISC DEGENERATION [None]
  - TINNITUS [None]
  - INTERVERTEBRAL DISC PROTRUSION [None]
